FAERS Safety Report 21311611 (Version 4)
Quarter: 2022Q4

REPORT INFORMATION
  Report Type: Report from Study
  Country: US (occurrence: US)
  Receive Date: 20220909
  Receipt Date: 20221123
  Transmission Date: 20230112
  Serious: No
  Sender: FDA-Public Use
  Company Number: US-NOVARTISTESTPH-NVSC2022US203409

PATIENT
  Sex: Female

DRUGS (4)
  1. AFINITOR [Suspect]
     Active Substance: EVEROLIMUS
     Indication: Neck pain
     Dosage: 10 MG, QD
     Route: 048
  2. AFINITOR [Suspect]
     Active Substance: EVEROLIMUS
     Indication: Pain in jaw
  3. AFINITOR [Suspect]
     Active Substance: EVEROLIMUS
     Indication: Neoplasm
  4. MOUTH WASH [Concomitant]
     Indication: Product used for unknown indication
     Dosage: UNK
     Route: 065

REACTIONS (3)
  - Pain in jaw [Unknown]
  - Oral mucosal blistering [Unknown]
  - Product use in unapproved indication [Unknown]
